FAERS Safety Report 14201838 (Version 1)
Quarter: 2017Q4

REPORT INFORMATION
  Report Type: Spontaneous
  Country: US (occurrence: US)
  Receive Date: 20171117
  Receipt Date: 20171117
  Transmission Date: 20180321
  Serious: No
  Sender: FDA-Public Use
  Company Number: US-G+W LABS-GW2017US000150

PATIENT

DRUGS (2)
  1. CLOBETASOL PROPIONATE. [Concomitant]
     Active Substance: CLOBETASOL PROPIONATE
     Indication: PSORIASIS
     Dosage: UNK
     Route: 061
  2. DESONIDE. [Suspect]
     Active Substance: DESONIDE
     Indication: PSORIASIS
     Dosage: 0.05 %, BID
     Dates: start: 20170504

REACTIONS (3)
  - Application site irritation [Recovered/Resolved]
  - Erythema [Recovered/Resolved]
  - Off label use [Not Recovered/Not Resolved]

NARRATIVE: CASE EVENT DATE: 20170504
